FAERS Safety Report 7324803-9 (Version None)
Quarter: 2011Q1

REPORT INFORMATION
  Report Type: 
  Country: None (occurrence: None)
  Receive Date: 20110301
  Receipt Date: 20110217
  Transmission Date: 20110831
  Serious: Yes (Death)
  Sender: FDA-Public Use
  Company Number: JP-ELI_LILLY_AND_COMPANY-JP201012004228

PATIENT
  Age: 60 Year
  Sex: Male

DRUGS (4)
  1. CISPLATIN [Concomitant]
     Indication: NON-SMALL CELL LUNG CANCER RECURRENT
     Dosage: 75 MG/M2, OTHER
     Route: 042
     Dates: start: 20101209, end: 20101209
  2. FOLIC ACID [Concomitant]
     Indication: PROPHYLAXIS
     Dosage: 0.5 MG, DAILY (1/D)
     Route: 048
     Dates: start: 20101122, end: 20101216
  3. ALIMTA [Suspect]
     Indication: NON-SMALL CELL LUNG CANCER RECURRENT
     Dosage: 500 MG/M2, OTHER
     Route: 042
     Dates: start: 20101209, end: 20101209
  4. VITAMIN B-12 [Concomitant]
     Indication: PROPHYLAXIS
     Dosage: 1 MG, DAILY (1/D)
     Route: 048
     Dates: start: 20101122, end: 20101122

REACTIONS (2)
  - DECREASED APPETITE [None]
  - PULMONARY EMBOLISM [None]
